FAERS Safety Report 9185217 (Version 2)
Quarter: 2013Q1

REPORT INFORMATION
  Report Type: Spontaneous
  Country: US (occurrence: US)
  Receive Date: 20130325
  Receipt Date: 20130327
  Transmission Date: 20140127
  Serious: Yes (Death, Hospitalization)
  Sender: FDA-Public Use
  Company Number: US-ABBOTT-13P-163-1067634-00

PATIENT
  Age: 39 Year
  Sex: Male

DRUGS (9)
  1. VALPROATE SEMISODIUM [Suspect]
     Indication: EPILEPSY
  2. LOPINAVIR/RITONAVIR [Suspect]
     Indication: HIV INFECTION
  3. AZITHROMYCIN [Suspect]
     Indication: MYCOBACTERIUM AVIUM COMPLEX INFECTION
  4. ETHAMBUTOL [Suspect]
     Indication: MYCOBACTERIUM AVIUM COMPLEX INFECTION
  5. TENOFOVIR [Suspect]
     Indication: PRODUCT USED FOR UNKNOWN INDICATION
  6. EMTRICITABINE [Suspect]
     Indication: PRODUCT USED FOR UNKNOWN INDICATION
  7. DAPSONE [Suspect]
     Indication: PRODUCT USED FOR UNKNOWN INDICATION
  8. CEFEPIME [Suspect]
     Indication: PNEUMONIA
  9. ANTIBIOTICS [Suspect]
     Indication: SINUSITIS

REACTIONS (10)
  - Vanishing bile duct syndrome [Unknown]
  - Jaundice [Unknown]
  - Blood alkaline phosphatase increased [Unknown]
  - Aspartate aminotransferase increased [Unknown]
  - Alanine aminotransferase increased [Unknown]
  - Blood bilirubin increased [Unknown]
  - Hepatomegaly [Unknown]
  - Cholestasis [Unknown]
  - Biopsy liver abnormal [Unknown]
  - Multi-organ failure [Fatal]
